FAERS Safety Report 7001175-0 (Version None)
Quarter: 2010Q3

REPORT INFORMATION
  Report Type: 
  Country: None (occurrence: None)
  Receive Date: 20100920
  Receipt Date: 20070711
  Transmission Date: 20110219
  Serious: Yes (Hospitalization)
  Sender: FDA-Public Use
  Company Number: US-ASTRAZENECA-2006UW12244

PATIENT
  Age: 562 Month
  Sex: Female
  Weight: 90.7 kg

DRUGS (18)
  1. SEROQUEL [Suspect]
     Indication: PSYCHOTIC DISORDER
     Dosage: 400 - 800 MG
     Route: 048
     Dates: start: 20030101
  2. SEROQUEL [Suspect]
     Indication: SLEEP DISORDER
     Dosage: 400 - 800 MG
     Route: 048
     Dates: start: 20030101
  3. SEROQUEL [Suspect]
     Indication: HALLUCINATION
     Dosage: 400 - 800 MG
     Route: 048
     Dates: start: 20030101
  4. SEROQUEL [Suspect]
     Dosage: 50 MG TO 400 MG
     Route: 048
     Dates: start: 20030106
  5. SEROQUEL [Suspect]
     Dosage: 50 MG TO 400 MG
     Route: 048
     Dates: start: 20030106
  6. SEROQUEL [Suspect]
     Dosage: 50 MG TO 400 MG
     Route: 048
     Dates: start: 20030106
  7. RISPERDAL [Concomitant]
     Dates: start: 20020101
  8. ZYPREXA [Concomitant]
     Dates: start: 20010101
  9. PROZAC [Concomitant]
     Indication: DEPRESSION
     Dosage: 20 MG TO 80 MG
     Route: 048
     Dates: start: 20030402
  10. PROZAC [Concomitant]
     Indication: ANXIETY
     Dosage: 20 MG TO 80 MG
     Route: 048
     Dates: start: 20030402
  11. GEODON [Concomitant]
     Indication: PSYCHOTIC DISORDER
     Route: 048
     Dates: start: 20060329
  12. GEODON [Concomitant]
     Indication: HALLUCINATION
     Route: 048
     Dates: start: 20060329
  13. COGENTIN [Concomitant]
     Indication: PSYCHOTIC DISORDER
     Route: 048
     Dates: start: 20060329
  14. VISTARIL [Concomitant]
     Indication: INSOMNIA
     Dates: start: 20030402
  15. VISTARIL [Concomitant]
     Indication: ANXIETY
     Dates: start: 20030402
  16. XANAX [Concomitant]
     Indication: ANXIETY
     Dates: start: 20031001
  17. KLONOPIN [Concomitant]
     Indication: SLEEP DISORDER
     Route: 048
     Dates: start: 20030402
  18. KLONOPIN [Concomitant]
     Indication: ANXIETY
     Route: 048
     Dates: start: 20030402

REACTIONS (5)
  - BLOOD CHOLESTEROL INCREASED [None]
  - BLOOD TRIGLYCERIDES INCREASED [None]
  - DIABETES MELLITUS [None]
  - HYPERLIPIDAEMIA [None]
  - OBESITY [None]
